FAERS Safety Report 25230784 (Version 1)
Quarter: 2025Q2

REPORT INFORMATION
  Report Type: Spontaneous
  Country: US (occurrence: US)
  Receive Date: 20250423
  Receipt Date: 20250423
  Transmission Date: 20250716
  Serious: No
  Sender: MISSION PHARMACAL COMPANY
  Company Number: US-Mission Pharmacal Company-2175463

PATIENT
  Age: 42 Year
  Sex: Female

DRUGS (2)
  1. THIOLA EC [Suspect]
     Active Substance: TIOPRONIN
     Indication: Cystinuria
     Dates: start: 20140929
  2. THIOLA EC [Suspect]
     Active Substance: TIOPRONIN
     Indication: Nephrolithiasis

REACTIONS (6)
  - Erythema [Unknown]
  - Intermittent explosive disorder [Unknown]
  - Mouth ulceration [Unknown]
  - Angioedema [Unknown]
  - Skin exfoliation [Unknown]
  - Seborrhoeic dermatitis [Unknown]
